FAERS Safety Report 5679494-X (Version None)
Quarter: 2008Q1

REPORT INFORMATION
  Report Type: 
  Country: None (occurrence: None)
  Receive Date: 20080321
  Receipt Date: 20080313
  Transmission Date: 20080703
  Serious: Yes (Death, Other)
  Sender: FDA-Public Use
  Company Number: 2007-04045

PATIENT
  Age: 46 Year
  Sex: Female
  Weight: 55 kg

DRUGS (9)
  1. VELCADE [Suspect]
     Indication: MULTIPLE MYELOMA
     Dosage: 1.90 MG/M2,INTRAVENOUS
     Route: 042
     Dates: start: 20070731, end: 20070831
  2. DEXAMETHASONE TAB [Concomitant]
  3. DECADRON [Concomitant]
  4. SODIUM BICARBONATE [Concomitant]
  5. ALENDRONATE SODIUM [Concomitant]
  6. BAKTAR (SULFAMETHOXAZOLE, TRIMETHOPRIM) [Concomitant]
  7. FAMOTIDINE [Concomitant]
  8. OXYCONTIN [Concomitant]
  9. ALLOPURINOL [Concomitant]

REACTIONS (3)
  - DISEASE PROGRESSION [None]
  - HERPES ZOSTER [None]
  - PLATELET COUNT DECREASED [None]
